FAERS Safety Report 8158358-6 (Version None)
Quarter: 2012Q1

REPORT INFORMATION
  Report Type: 
  Country: None (occurrence: None)
  Receive Date: 20120217
  Receipt Date: 20120206
  Transmission Date: 20120608
  Serious: Yes (Hospitalization)
  Sender: FDA-Public Use
  Company Number: 1192296

PATIENT
  Age: 4 Month
  Sex: Female

DRUGS (1)
  1. BUPRENORPHINE [Suspect]
     Dosage: TRANSPLACENTAL
     Route: 064

REACTIONS (12)
  - YAWNING [None]
  - DRUG WITHDRAWAL SYNDROME NEONATAL [None]
  - MATERNAL DRUGS AFFECTING FOETUS [None]
  - INSOMNIA [None]
  - EXPOSURE DURING BREAST FEEDING [None]
  - PSYCHOMOTOR HYPERACTIVITY [None]
  - SNEEZING [None]
  - TREMOR [None]
  - MYDRIASIS [None]
  - AGITATION NEONATAL [None]
  - HYPERHIDROSIS [None]
  - MYOCLONUS [None]
